FAERS Safety Report 14598611 (Version 1)
Quarter: 2018Q1

REPORT INFORMATION
  Report Type: Spontaneous
  Country: US (occurrence: US)
  Receive Date: 20180302
  Receipt Date: 20180302
  Transmission Date: 20180509
  Serious: Yes (Hospitalization)
  Sender: FDA-Public Use
  Company Number: None

PATIENT
  Age: 35 Year
  Sex: Female
  Weight: 125.2 kg

DRUGS (2)
  1. CYCLOSPORINE. [Concomitant]
     Active Substance: CYCLOSPORINE
     Dates: start: 20171231
  2. CIDOFOVIR. [Suspect]
     Active Substance: CIDOFOVIR
     Indication: ADENOVIRUS INFECTION
     Dosage: ?          OTHER FREQUENCY:THREE TIMES WEEKLY;?
     Dates: start: 20180113, end: 20180126

REACTIONS (7)
  - Immunosuppression [None]
  - Pyrexia [None]
  - Toxicity to various agents [None]
  - Transplant rejection [None]
  - Tubulointerstitial nephritis [None]
  - Cells in urine [None]
  - Metabolic acidosis [None]

NARRATIVE: CASE EVENT DATE: 20180126
